FAERS Safety Report 9284362 (Version 1)
Quarter: 2013Q2

REPORT INFORMATION
  Report Type: Spontaneous
  Country: US (occurrence: US)
  Receive Date: 20130510
  Receipt Date: 20130510
  Transmission Date: 20140414
  Serious: Yes (Other)
  Sender: FDA-Public Use
  Company Number: US-PFIZER INC-2013146571

PATIENT
  Age: 47 Year
  Sex: Male

DRUGS (2)
  1. EPIPEN [Suspect]
  2. DIPHENHYDRAMINE [Concomitant]
     Indication: THROAT IRRITATION
     Dosage: 50 MG, SINGLE

REACTIONS (6)
  - Accidental exposure to product [Recovered/Resolved]
  - Injection site discolouration [Recovered/Resolved]
  - Paraesthesia oral [Recovered/Resolved]
  - Injection site pain [Recovered/Resolved]
  - Injection site pallor [Recovered/Resolved]
  - Vasoconstriction [Recovered/Resolved]
